FAERS Safety Report 9485104 (Version 1)
Quarter: 2013Q3

REPORT INFORMATION
  Report Type: Spontaneous
  Country: US (occurrence: US)
  Receive Date: 20130828
  Receipt Date: 20130828
  Transmission Date: 20140515
  Serious: No
  Sender: FDA-Public Use
  Company Number: US-ABBOTT-13P-163-1108809-00

PATIENT
  Age: 57 Year
  Sex: Male
  Weight: 86.26 kg

DRUGS (3)
  1. ANDROGEL [Suspect]
     Indication: BLOOD TESTOSTERONE DECREASED
     Dosage: FOUR PUMPS DAILY
     Route: 061
     Dates: start: 20130603
  2. ANDROGEL [Suspect]
     Indication: BLOOD TESTOSTERONE DECREASED
     Route: 061
     Dates: end: 20130602
  3. IBUPROFEN [Concomitant]
     Indication: PAIN

REACTIONS (1)
  - Exercise tolerance decreased [Not Recovered/Not Resolved]
